FAERS Safety Report 7135392-6 (Version None)
Quarter: 2010Q4

REPORT INFORMATION
  Report Type: 
  Country: None (occurrence: None)
  Receive Date: 20101203
  Receipt Date: 20101118
  Transmission Date: 20110411
  Serious: Yes (Hospitalization)
  Sender: FDA-Public Use
  Company Number: US-ELI_LILLY_AND_COMPANY-US201003006114

PATIENT
  Sex: Male
  Weight: 59 kg

DRUGS (19)
  1. PEMETREXED [Suspect]
     Indication: NON-SMALL CELL LUNG CANCER STAGE IV
     Dosage: 500 MG/M2, DAY 1 EVERY 21 DAYS
     Route: 042
     Dates: start: 20091217, end: 20100218
  2. PEMETREXED [Suspect]
     Dosage: 500 MG/M2, DAY 1 EVERY 21 DAYS
     Route: 042
     Dates: start: 20100311, end: 20100311
  3. CARBOPLATIN [Suspect]
     Indication: NON-SMALL CELL LUNG CANCER STAGE IV
     Dosage: 6 AUC, DAY 1 EVERY 21 DAYS
     Route: 042
     Dates: start: 20091217, end: 20100218
  4. BEVACIZUMAB [Suspect]
     Indication: NON-SMALL CELL LUNG CANCER STAGE IV
     Dosage: 15 MG/KG, DAY 1 EVERY 21 DAYS
     Route: 042
     Dates: start: 20091217, end: 20100218
  5. BEVACIZUMAB [Suspect]
     Dosage: 15 MG/KG, DAY 1 EVERY 21 DAYS
     Route: 042
     Dates: start: 20100311, end: 20100311
  6. FOLIC ACID [Concomitant]
     Indication: SUPPLEMENTATION THERAPY
     Dosage: 600 MG, DAILY (1/D)
     Dates: start: 20091023
  7. VITAMIN B-12 [Concomitant]
     Indication: SUPPLEMENTATION THERAPY
     Dosage: 1000 UG, 9 WKS
     Route: 030
     Dates: start: 20091209
  8. LISINOPRIL [Concomitant]
     Dosage: 20 MG, DAILY (1/D)
     Dates: start: 20040101
  9. AMLODIPINE [Concomitant]
     Dosage: 10 MG, DAILY (1/D)
     Dates: start: 20040101
  10. SIMVASTATIN [Concomitant]
     Dosage: 20 MG, DAILY (1/D)
     Dates: start: 20040101, end: 20100326
  11. MEGACE [Concomitant]
     Dosage: 800 MG, DAILY (1/D)
     Dates: start: 20091209
  12. CALCIUM [Concomitant]
     Dosage: 1000 MG, DAILY (1/D)
     Dates: start: 20091023
  13. VICODIN [Concomitant]
     Indication: PAIN
     Dosage: UNK, AS NEEDED
     Route: 048
     Dates: start: 20091023
  14. COMPAZINE [Concomitant]
     Indication: NAUSEA
     Dosage: 10 MG, AS NEEDED
     Dates: start: 20091217
  15. NEULASTA [Concomitant]
     Indication: PROPHYLAXIS
     Dosage: 6 MG, UNK
     Dates: start: 20091218
  16. WELLBUTRIN [Concomitant]
     Indication: SMOKING CESSATION THERAPY
     Dosage: 150 MG, DAILY (1/D)
     Dates: start: 20100128
  17. SLOW-MAG [Concomitant]
     Indication: HYPOMAGNESAEMIA
     Dosage: UNK, 2/D
     Route: 048
     Dates: start: 20100107
  18. KYTRIL [Concomitant]
     Indication: NAUSEA
     Dosage: 1 MG, UNK
     Route: 042
     Dates: start: 20091217
  19. DEXAMETHASONE [Concomitant]
     Indication: PREMEDICATION
     Dosage: 4 MG/KG, 2/D
     Dates: start: 20091216

REACTIONS (5)
  - DEHYDRATION [None]
  - DYSPHAGIA [None]
  - MALNUTRITION [None]
  - OESOPHAGITIS [None]
  - PNEUMONIA [None]
